FAERS Safety Report 8359507-7 (Version None)
Quarter: 2012Q2

REPORT INFORMATION
  Report Type: 
  Country: None (occurrence: None)
  Receive Date: 20120515
  Receipt Date: 20120510
  Transmission Date: 20120825
  Serious: Yes (Other)
  Sender: FDA-Public Use
  Company Number: 2012SP001387

PATIENT
  Sex: Female

DRUGS (2)
  1. ALVESCO [Suspect]
     Indication: PRODUCT USED FOR UNKNOWN INDICATION
     Route: 055
  2. ALVESCO [Suspect]
     Route: 055

REACTIONS (1)
  - NEOPLASM MALIGNANT [None]
